FAERS Safety Report 18927632 (Version 1)
Quarter: 2021Q1

REPORT INFORMATION
  Report Type: Other
  Country: ES (occurrence: ES)
  Receive Date: 20210223
  Receipt Date: 20210223
  Transmission Date: 20210420
  Serious: Yes (Hospitalization)
  Sender: FDA-Public Use
  Company Number: ES-DEXPHARM-20210224

PATIENT
  Age: 89 Year
  Sex: Female

DRUGS (2)
  1. OMEPRAZOLE. [Suspect]
     Active Substance: OMEPRAZOLE
  2. ASPIRIN. [Suspect]
     Active Substance: ASPIRIN

REACTIONS (5)
  - Gastrointestinal disorder [Recovered/Resolved]
  - Intestinal ulcer [Recovered/Resolved]
  - Small intestinal obstruction [Recovered/Resolved]
  - Intestinal fistula [Recovered/Resolved]
  - Drug interaction [Recovered/Resolved]
